FAERS Safety Report 4302733-4 (Version None)
Quarter: 2004Q1

REPORT INFORMATION
  Report Type: 
  Country: None (occurrence: None)
  Receive Date: 20040126
  Receipt Date: 20031014
  Transmission Date: 20041129
  Serious: No
  Sender: FDA-Public Use
  Company Number: USA031049895

PATIENT
  Age: 35 Year
  Sex: Female

DRUGS (2)
  1. STRATTERA [Suspect]
     Dosage: 40 MG/DAY
  2. EFFEXOR [Concomitant]

REACTIONS (2)
  - INSOMNIA [None]
  - RESTLESSNESS [None]
